FAERS Safety Report 4394549-8 (Version None)
Quarter: 2004Q3

REPORT INFORMATION
  Report Type: 
  Country: None (occurrence: None)
  Receive Date: 20040707
  Receipt Date: 20040623
  Transmission Date: 20050211
  Serious: Yes (Life-Threatening)
  Sender: FDA-Public Use
  Company Number: 04P-163-0264708-00

PATIENT
  Age: 13 Year
  Sex: Female

DRUGS (2)
  1. ULTANE LIQUID FOR INHALATION (SEVOFLURANE) [Suspect]
     Indication: INDUCTION OF ANAESTHESIA
     Dosage: 2-8 PERCENT, ONCE, INHALATION
     Dates: start: 20030101, end: 20030101
  2. NITROUS OXIDE [Concomitant]

REACTIONS (3)
  - ANAESTHETIC COMPLICATION [None]
  - BRADYCARDIA [None]
  - CARDIAC ARREST [None]
